FAERS Safety Report 8566046 (Version 2)
Quarter: 2013Q3

REPORT INFORMATION
  Report Type: Spontaneous
  Country: IT (occurrence: IT)
  Receive Date: 20120516
  Receipt Date: 20130729
  Transmission Date: 20140515
  Serious: Yes (Hospitalization)
  Sender: FDA-Public Use
  Company Number: IT-MYLANLABS-2012S1009562

PATIENT
  Age: 3 Year
  Sex: Male

DRUGS (1)
  1. IBUPROFEN [Suspect]
     Indication: VIRAL INFECTION
     Dosage: 3 DOSES PER DAY (10 MG/KG)
     Route: 048

REACTIONS (4)
  - Gastritis haemorrhagic [Recovered/Resolved]
  - Gastric ulcer [Recovered/Resolved]
  - Prepyloric stenosis [Recovered/Resolved]
  - Obstruction gastric [Recovered/Resolved]
